FAERS Safety Report 12963729 (Version 1)
Quarter: 2016Q4

REPORT INFORMATION
  Report Type: Report from Study
  Country: CA (occurrence: CA)
  Receive Date: 20161122
  Receipt Date: 20161122
  Transmission Date: 20170207
  Serious: Yes (Other)
  Sender: FDA-Public Use
  Company Number: CA-ORION CORPORATION ORION PHARMA-TREX2016-2308

PATIENT
  Sex: Female

DRUGS (3)
  1. INDOCID [Concomitant]
     Active Substance: INDOMETHACIN
     Route: 065
     Dates: end: 20161025
  2. METHOTREXATE (TRADE NAME UNKNOWN) [Suspect]
     Active Substance: METHOTREXATE
     Route: 065
  3. ENBREL [Suspect]
     Active Substance: ETANERCEPT
     Indication: JUVENILE IDIOPATHIC ARTHRITIS
     Route: 065
     Dates: start: 20130802, end: 20161014

REACTIONS (3)
  - Haemoglobin decreased [Unknown]
  - Crohn^s disease [Unknown]
  - Pallor [Unknown]

NARRATIVE: CASE EVENT DATE: 20160907
